FAERS Safety Report 8433022-4 (Version None)
Quarter: 2012Q2

REPORT INFORMATION
  Report Type: 
  Country: None (occurrence: None)
  Receive Date: 20120613
  Receipt Date: 20120529
  Transmission Date: 20120825
  Serious: Yes (Death, Hospitalization)
  Sender: FDA-Public Use
  Company Number: ES-ROCHE-1073396

PATIENT
  Age: 62 Year
  Sex: Male

DRUGS (1)
  1. VESANOID [Suspect]
     Indication: ACUTE PROMYELOCYTIC LEUKAEMIA
     Route: 048
     Dates: start: 20120316, end: 20120318

REACTIONS (3)
  - LEUKOCYTOSIS [None]
  - ACUTE RESPIRATORY DISTRESS SYNDROME [None]
  - RETINOIC ACID SYNDROME [None]
